APPROVED DRUG PRODUCT: AMIPAQUE
Active Ingredient: METRIZAMIDE
Strength: 13.5GM/VIAL
Dosage Form/Route: INJECTABLE;INJECTION
Application: N017982 | Product #004
Applicant: GE HEALTHCARE
Approved: Sep 12, 1983 | RLD: No | RS: No | Type: DISCN